FAERS Safety Report 7301228-3 (Version None)
Quarter: 2011Q1

REPORT INFORMATION
  Report Type: 
  Country: None (occurrence: None)
  Receive Date: 20110218
  Receipt Date: 20110207
  Transmission Date: 20110831
  Serious: Yes (Hospitalization)
  Sender: FDA-Public Use
  Company Number: ES-ELI_LILLY_AND_COMPANY-ES201102001920

PATIENT
  Sex: Female

DRUGS (8)
  1. CARVEDILOL [Concomitant]
     Indication: HYPERTENSION
     Dosage: 25 MG, 2/D
     Route: 048
  2. DURACILLIN [Concomitant]
     Indication: PAIN
     Dosage: 1 D/F, 3/W
     Route: 062
  3. OMEPRAZOLE [Concomitant]
     Indication: GASTRIC DISORDER
     Dosage: 1 D/F, DAILY (1/D)
     Route: 048
  4. ADIRO [Concomitant]
     Indication: CARDIAC DISORDER
     Dosage: 1 D/F, DAILY (1/D)
     Route: 048
  5. FORTEO [Suspect]
     Indication: OSTEOPOROSIS
     Dosage: 20 UG, DAILY (1/D)
     Route: 058
  6. CODIOVAN [Concomitant]
     Indication: HYPERTENSION
     Dosage: 1 D/F, DAILY (1/D)
     Route: 048
  7. ACTIQ [Concomitant]
     Indication: PAIN
     Dosage: 3 D/F, DAILY (1/D)
     Route: 048
  8. MOTILIUM [Concomitant]
     Indication: HIATUS HERNIA
     Dosage: 1 D/F, DAILY (1/D)
     Route: 048

REACTIONS (2)
  - ANAEMIA [None]
  - PANCREATITIS [None]
